FAERS Safety Report 11681098 (Version 3)
Quarter: 2015Q4

REPORT INFORMATION
  Report Type: Spontaneous
  Country: US (occurrence: US)
  Receive Date: 20151027
  Receipt Date: 20151110
  Transmission Date: 20160304
  Serious: No
  Sender: FDA-Public Use
  Company Number: US-ELI_LILLY_AND_COMPANY-US201008002852

PATIENT
  Age: 51 Year
  Sex: Female

DRUGS (6)
  1. FORTEO [Suspect]
     Active Substance: TERIPARATIDE
     Dosage: 20 UG, QD
     Route: 058
  2. FORTEO [Suspect]
     Active Substance: TERIPARATIDE
     Indication: OSTEOPOROSIS
     Dosage: 20 UG, DAILY (1/D)
     Route: 058
     Dates: start: 20100716
  3. FORTEO [Suspect]
     Active Substance: TERIPARATIDE
     Dosage: 20 UG, DAILY (1/D)
     Route: 058
  4. FORTEO [Suspect]
     Active Substance: TERIPARATIDE
     Dosage: 20 UG, QD
     Route: 058
  5. FORTEO [Suspect]
     Active Substance: TERIPARATIDE
     Dosage: 20 UG, DAILY (1/D)
     Route: 058
  6. FORTEO [Suspect]
     Active Substance: TERIPARATIDE
     Dosage: 20 UG, QD
     Route: 058

REACTIONS (12)
  - Tooth infection [Recovering/Resolving]
  - Bronchitis [Unknown]
  - Spinal fracture [Unknown]
  - Influenza [Unknown]
  - Tooth extraction [Unknown]
  - Fall [Recovered/Resolved]
  - Pharyngitis [Unknown]
  - Rotator cuff syndrome [Unknown]
  - Pain in extremity [Recovered/Resolved]
  - Injury [Unknown]
  - Sinusitis [Unknown]
  - Malaise [Unknown]

NARRATIVE: CASE EVENT DATE: 20111201
